FAERS Safety Report 6531401-3 (Version None)
Quarter: 2010Q1

REPORT INFORMATION
  Report Type: 
  Country: None (occurrence: None)
  Receive Date: 20100108
  Receipt Date: 20091103
  Transmission Date: 20100710
  Serious: No
  Sender: FDA-Public Use
  Company Number: A0814750A

PATIENT
  Age: 54 Year
  Sex: Female

DRUGS (4)
  1. TYKERB [Suspect]
     Dosage: 1250MG PER DAY
     Route: 048
     Dates: start: 20091029
  2. WOBE-MUGOS [Concomitant]
  3. PROCHLOROPERAZINE [Concomitant]
  4. UNKNOWN SUPPLEMENT [Concomitant]

REACTIONS (2)
  - RETCHING [None]
  - VOMITING [None]
